FAERS Safety Report 18952539 (Version 3)
Quarter: 2021Q2

REPORT INFORMATION
  Report Type: Spontaneous
  Country: JP (occurrence: JP)
  Receive Date: 20210301
  Receipt Date: 20210416
  Transmission Date: 20210717
  Serious: Yes (Death, Other)
  Sender: FDA-Public Use
  Company Number: NVSJ2021JP002976

PATIENT
  Sex: Male

DRUGS (3)
  1. PREDONINE [Suspect]
     Active Substance: PREDNISOLONE
     Indication: PYREXIA
     Dosage: 20 MG
     Route: 048
     Dates: start: 202102
  2. TAFINLAR [Suspect]
     Active Substance: DABRAFENIB MESYLATE
     Indication: MALIGNANT MELANOMA
     Dosage: 300 MG
     Route: 048
     Dates: start: 20210128, end: 202102
  3. MEKINIST [Suspect]
     Active Substance: TRAMETINIB DIMETHYL SULFOXIDE
     Indication: MALIGNANT MELANOMA
     Dosage: 2 MG
     Route: 048
     Dates: start: 20210128, end: 202102

REACTIONS (4)
  - Malignant melanoma [Fatal]
  - Pyrexia [Recovered/Resolved]
  - Malignant neoplasm progression [Fatal]
  - Delirium [Unknown]

NARRATIVE: CASE EVENT DATE: 202102
